FAERS Safety Report 10864487 (Version 7)
Quarter: 2015Q3

REPORT INFORMATION
  Report Type: Spontaneous
  Country: US (occurrence: US)
  Receive Date: 20150223
  Receipt Date: 20150928
  Transmission Date: 20151125
  Serious: Yes (Other)
  Sender: FDA-Public Use
  Company Number: US-TEVA-541934USA

PATIENT
  Sex: Female

DRUGS (1)
  1. NUVIGIL [Suspect]
     Active Substance: ARMODAFINIL
     Route: 065

REACTIONS (4)
  - Fibromyalgia [Unknown]
  - Spinal operation [Not Recovered/Not Resolved]
  - Irritable bowel syndrome [Unknown]
  - Pain [Not Recovered/Not Resolved]
